FAERS Safety Report 8122497-6 (Version None)
Quarter: 2012Q1

REPORT INFORMATION
  Report Type: 
  Country: None (occurrence: None)
  Receive Date: 20120208
  Receipt Date: 20120206
  Transmission Date: 20120608
  Serious: No
  Sender: FDA-Public Use
  Company Number: US-TEVA-321285USA

PATIENT
  Sex: Female
  Weight: 65.83 kg

DRUGS (6)
  1. WARFARIN SODIUM [Concomitant]
     Indication: EMBOLISM
     Dosage: 4 MILLIGRAM;
     Route: 048
     Dates: start: 20111129
  2. VITAMIN B-12 [Concomitant]
     Indication: VITAMIN SUPPLEMENTATION
  3. AZILECT [Suspect]
     Indication: PARKINSON'S DISEASE
     Dosage: .5 MILLIGRAM;
     Route: 048
     Dates: start: 20120203
  4. SINEMET [Concomitant]
     Indication: PARKINSON'S DISEASE
     Route: 048
  5. VITAMIN D [Concomitant]
     Indication: VITAMIN SUPPLEMENTATION
     Dosage: 1000 IU (INTERNATIONAL UNIT);
     Route: 048
  6. CALCIUM [Concomitant]
     Indication: VITAMIN SUPPLEMENTATION
     Dosage: 500 MILLIGRAM;
     Route: 048

REACTIONS (4)
  - DYSKINESIA [None]
  - BALANCE DISORDER [None]
  - GAIT DISTURBANCE [None]
  - HEADACHE [None]
